FAERS Safety Report 4898464-2 (Version None)
Quarter: 2006Q1

REPORT INFORMATION
  Report Type: 
  Country: None (occurrence: None)
  Receive Date: 20060202
  Receipt Date: 20051014
  Transmission Date: 20060701
  Serious: Yes (Hospitalization, Other)
  Sender: FDA-Public Use
  Company Number: PHEH2005US11492

PATIENT
  Age: 10 Year
  Sex: Female
  Weight: 29.5 kg

DRUGS (3)
  1. TRILEPTAL [Suspect]
     Indication: COMPLEX PARTIAL SEIZURES
     Dosage: 300 MG, BID
     Route: 048
     Dates: start: 20040927
  2. TRILEPTAL [Suspect]
     Dosage: 450 MG, BID
     Route: 048
     Dates: start: 20050922
  3. TRILEPTAL [Suspect]
     Dosage: 450 MG, BID
     Route: 048
     Dates: start: 20031101

REACTIONS (7)
  - BIOPSY KIDNEY [None]
  - BLOOD ALBUMIN DECREASED [None]
  - GLOMERULONEPHRITIS PROLIFERATIVE [None]
  - HAEMATURIA [None]
  - PROTEIN URINE PRESENT [None]
  - URINE ANALYSIS ABNORMAL [None]
  - URINE PROTEIN/CREATININE RATIO INCREASED [None]
